FAERS Safety Report 15196783 (Version 2)
Quarter: 2020Q3

REPORT INFORMATION
  Report Type: Report from Study
  Country: US (occurrence: US)
  Receive Date: 20180725
  Receipt Date: 20200728
  Transmission Date: 20201102
  Serious: Yes (Hospitalization)
  Sender: FDA-Public Use
  Company Number: US-JNJFOC-20180725601

PATIENT
  Age: 10 Year
  Sex: Female
  Weight: 37 kg

DRUGS (1)
  1. CISAPRIDE [Suspect]
     Active Substance: CISAPRIDE
     Indication: GASTROOESOPHAGEAL REFLUX DISEASE
     Route: 048
     Dates: start: 20180426, end: 20180718

REACTIONS (1)
  - Electrocardiogram QT prolonged [Not Recovered/Not Resolved]

NARRATIVE: CASE EVENT DATE: 201807
